FAERS Safety Report 25539392 (Version 3)
Quarter: 2025Q3

REPORT INFORMATION
  Report Type: Spontaneous
  Country: US (occurrence: US)
  Receive Date: 20250710
  Receipt Date: 20250819
  Transmission Date: 20251021
  Serious: No
  Sender: LUPIN
  Company Number: US-LUPIN PHARMACEUTICALS INC.-2025-05774

PATIENT
  Age: 74 Year
  Weight: 69.388 kg

DRUGS (1)
  1. LISINOPRIL [Suspect]
     Active Substance: LISINOPRIL
     Indication: Blood pressure abnormal
     Dosage: 1 DOSAGE FORM, QD  (ONE TABLET EVERY DAY)
     Route: 065

REACTIONS (5)
  - Dizziness [Unknown]
  - Headache [Unknown]
  - Vertigo [Not Recovered/Not Resolved]
  - Product quality issue [Unknown]
  - Drug intolerance [Unknown]
